FAERS Safety Report 23653216 (Version 1)
Quarter: 2024Q1

REPORT INFORMATION
  Report Type: Spontaneous
  Country: US (occurrence: US)
  Receive Date: 20240320
  Receipt Date: 20240320
  Transmission Date: 20240410
  Serious: No
  Sender: FDA-Public Use
  Company Number: US-BRISTOL-MYERS SQUIBB COMPANY-2024-038715

PATIENT
  Age: 76 Year
  Sex: Female
  Weight: 55.79 kg

DRUGS (1)
  1. REVLIMID [Suspect]
     Active Substance: LENALIDOMIDE
     Indication: Plasma cell myeloma
     Dosage: FREQUENCY-1 CAPSULE DAILY FOR 21 DAYS, THEN 7 DAYS OFF
     Route: 048

REACTIONS (2)
  - Product distribution issue [Unknown]
  - Therapy interrupted [Unknown]
